FAERS Safety Report 4482568-2 (Version None)
Quarter: 2004Q3

REPORT INFORMATION
  Report Type: 
  Country: None (occurrence: None)
  Receive Date: 20040921
  Receipt Date: 20040617
  Transmission Date: 20050211
  Serious: Yes (Life-Threatening, Hospitalization)
  Sender: FDA-Public Use
  Company Number: 163-20785-04060514

PATIENT
  Age: 67 Year
  Sex: Male
  Weight: 87.9 kg

DRUGS (10)
  1. THALOMID [Suspect]
     Indication: MULTIPLE MYELOMA
     Dosage: 200-400MG, DAILY, ORAL
     Route: 048
     Dates: start: 20021202, end: 20040606
  2. COUMADIN [Suspect]
     Indication: ANTICOAGULANT THERAPY
     Dosage: 7.5 MG, DAILY, ORAL
     Route: 048
     Dates: start: 20040501, end: 20040601
  3. GENASENSE [Suspect]
     Indication: MULTIPLE MYELOMA
     Dosage: 3 MG/KG/DAY, DAYS 1-7 Q 5 WEEKS, INTRAVENOUS
     Route: 042
     Dates: start: 20021202, end: 20040602
  4. DEXAMETHASONE [Suspect]
     Indication: MULTIPLE MYELOMA
     Dosage: 20 MG, DAYS 4-7 Q 5 WEEKS, ORAL
     Route: 048
     Dates: start: 20021202, end: 20040601
  5. AMBIEN [Concomitant]
  6. NEURONTIN [Concomitant]
  7. OXYCONTIN [Concomitant]
  8. PERCOCET [Concomitant]
  9. PREVACID [Concomitant]
  10. ACYCLOVIR [Concomitant]

REACTIONS (8)
  - ANAEMIA [None]
  - ASTHENIA [None]
  - BLOOD CREATININE INCREASED [None]
  - FATIGUE [None]
  - HYPOTENSION [None]
  - INTERNATIONAL NORMALISED RATIO INCREASED [None]
  - PROTHROMBIN TIME PROLONGED [None]
  - RECTAL HAEMORRHAGE [None]
